FAERS Safety Report 9018651 (Version 3)
Quarter: 2013Q2

REPORT INFORMATION
  Report Type: Report from Study
  Country: JP (occurrence: JP)
  Receive Date: 20130118
  Receipt Date: 20130524
  Transmission Date: 20140414
  Serious: Yes (Hospitalization)
  Sender: FDA-Public Use
  Company Number: JP-009507513-1301JPN007074

PATIENT
  Age: 57 Year
  Sex: Female
  Weight: 61 kg

DRUGS (11)
  1. REBETOL [Suspect]
     Indication: CHRONIC HEPATITIS C
     Dosage: 400 MG, BID
     Route: 048
     Dates: start: 20120104, end: 20120203
  2. REBETOL [Suspect]
     Dosage: IN THE MORNING 200MG, IN THE EVENING 400MG, BID
     Route: 048
     Dates: start: 20120204, end: 20120623
  3. FERON [Suspect]
     Indication: CHRONIC HEPATITIS C
     Dosage: 6 MILLION-BILLION UNIT, QD
     Route: 041
     Dates: start: 20120104, end: 20120118
  4. FERON [Suspect]
     Dosage: 6 MILLION-BILLION UNIT, 3 TIMES A WEEK
     Route: 041
     Dates: start: 20120120, end: 20120623
  5. WARFARIN POTASSIUM [Suspect]
     Indication: ATRIAL FIBRILLATION
     Dosage: 2.5 MG, QD
     Route: 048
     Dates: start: 20120624
  6. URSO [Concomitant]
     Indication: CHRONIC HEPATITIS C
     Dosage: 600 MG DAILY DIVIDED DOSE, FREQUENCY UNKNOWN
     Route: 048
     Dates: start: 200609
  7. URSO [Concomitant]
     Dosage: 300MG DAILY, DIVIDED DOSE FREQUENCY UNKNOWN
     Route: 048
     Dates: start: 20120724
  8. LIMAS [Concomitant]
     Indication: DEPRESSION
     Dosage: 400 MG DAILY,DIVIDED DOSE FREQUENCY UNKNOWN
     Route: 048
     Dates: start: 20111222
  9. DEPAS [Concomitant]
     Indication: DEPRESSION
     Dosage: 0.5 MG DAILY,DIVIDED DOSE FREQUENCY UNKNOWN
     Route: 048
     Dates: start: 20120202
  10. CALONAL [Concomitant]
     Indication: PERICARDITIS
     Dosage: 400 MG DAILY, ADMINISTRATE AS NEED, TEN TIMES IN TOTAL
     Route: 048
     Dates: start: 20120623, end: 20120724
  11. PRONON [Concomitant]
     Indication: ATRIAL FIBRILLATION
     Dosage: 300 MG DAILY, DIVIDED DOSE FREQUENCY UNKNOWN
     Route: 048
     Dates: start: 20120624

REACTIONS (6)
  - Renal failure acute [Recovered/Resolved]
  - Atrial fibrillation [Recovered/Resolved]
  - Pericarditis [Recovered/Resolved]
  - Anaemia [Recovered/Resolved]
  - Pyrexia [Recovering/Resolving]
  - Prothrombin time ratio decreased [Recovered/Resolved]
